FAERS Safety Report 21091181 (Version 1)
Quarter: 2022Q3

REPORT INFORMATION
  Report Type: Spontaneous
  Country: GB (occurrence: GB)
  Receive Date: 20220716
  Receipt Date: 20220716
  Transmission Date: 20221027
  Serious: Yes (Hospitalization, Other)
  Sender: FDA-Public Use
  Company Number: GB-Merck KGaA-8033211

PATIENT
  Age: 61 Year
  Sex: Female
  Weight: 62 kg

DRUGS (24)
  1. METFORMIN [Suspect]
     Active Substance: METFORMIN HYDROCHLORIDE
     Indication: Product used for unknown indication
     Dosage: UNIT DOSE : 2 GRAM
     Route: 065
  2. CARBOPLATIN [Suspect]
     Active Substance: CARBOPLATIN
     Indication: Breast cancer
     Dosage: UNIT DOSE : 750 MG
     Route: 065
     Dates: start: 20120817
  3. CARBOPLATIN [Suspect]
     Active Substance: CARBOPLATIN
     Dosage: UNIT DOSE : 500 MG
     Route: 065
     Dates: start: 20121012
  4. DOCETAXEL [Suspect]
     Active Substance: DOCETAXEL
     Indication: Breast cancer
     Route: 065
     Dates: start: 20121210
  5. DOCETAXEL [Suspect]
     Active Substance: DOCETAXEL
     Dosage: UNIT DOSE : 120 MG
     Route: 065
     Dates: start: 20120817
  6. DOCETAXEL [Suspect]
     Active Substance: DOCETAXEL
     Dosage: UNIT DOSE : 80 MG
     Route: 065
     Dates: start: 20121012
  7. HERCEPTIN [Suspect]
     Active Substance: TRASTUZUMAB
     Indication: Breast cancer
     Dosage: UNIT DOSE : 546 MG
     Route: 050
     Dates: start: 20120817
  8. HERCEPTIN [Suspect]
     Active Substance: TRASTUZUMAB
     Dosage: UNIT DOSE : 420  MG
     Route: 050
     Dates: start: 20121012
  9. PERTUZUMAB [Suspect]
     Active Substance: PERTUZUMAB
     Indication: Breast cancer
     Dosage: UNIT DOSE : 1 MG , FREQUENCY TIME : 3 WEEKS, THERAPY DURATION : 57  DAYS
     Route: 050
     Dates: start: 20120817, end: 20121012
  10. TRASTUZUMAB [Suspect]
     Active Substance: TRASTUZUMAB
     Indication: Breast cancer
     Route: 050
     Dates: start: 20120817
  11. CALCIUM\CHOLECALCIFEROL [Concomitant]
     Active Substance: CALCIUM\CHOLECALCIFEROL
     Indication: Product used for unknown indication
  12. CHLORPHENIRAMINE MALEATE [Concomitant]
     Active Substance: CHLORPHENIRAMINE MALEATE
     Indication: Product used for unknown indication
     Dosage: BOLUS
     Dates: start: 20120817
  13. DEXAMETHASONE [Concomitant]
     Active Substance: DEXAMETHASONE
     Indication: Product used for unknown indication
     Dosage: THERAPY DURATION : 3 DAYS
     Dates: start: 20120816, end: 20120818
  14. FILGRASTIM [Concomitant]
     Active Substance: FILGRASTIM
     Indication: Product used for unknown indication
     Dosage: THERAPY DURATION : 21 DAYS
     Dates: start: 20120914, end: 20120920
  15. FILGRASTIM [Concomitant]
     Active Substance: FILGRASTIM
     Dosage: THERAPY DURATION : 21 DAYS
     Dates: start: 20121012, end: 20121019
  16. FILGRASTIM [Concomitant]
     Active Substance: FILGRASTIM
     Dosage: THERAPY DURATION : 21 DAYS
     Dates: start: 20120818, end: 20120823
  17. GLICLAZIDE [Concomitant]
     Active Substance: GLICLAZIDE
     Indication: Product used for unknown indication
  18. METOCLOPRAMIDE [Concomitant]
     Active Substance: METOCLOPRAMIDE
     Indication: Product used for unknown indication
     Dosage: 80 MILLIGRAM (40-80 MG), UNIT DOSE : 80 MG AND THERAPY DURATION :6 DAYS
     Dates: start: 20120914, end: 20120920
  19. ONDANSETRON [Concomitant]
     Active Substance: ONDANSETRON
     Indication: Product used for unknown indication
     Dosage: THERAPY DURATION : 15 DAYS
     Route: 050
     Dates: start: 20120914, end: 20120918
  20. ONDANSETRON [Concomitant]
     Active Substance: ONDANSETRON
     Dosage: 6 MILLIGRAM (4-6 MG), UNIT DOSE : 6 MG  AND THERAPY DURATION : 15 DAYS
     Route: 050
     Dates: start: 20121012, end: 20121018
  21. ONDANSETRON [Concomitant]
     Active Substance: ONDANSETRON
     Dosage: UNK (BOLUS); THERAPY DURATION : 15 DAYS
     Route: 050
     Dates: start: 20120817, end: 20120821
  22. ONDANSETRON [Concomitant]
     Active Substance: ONDANSETRON
     Route: 050
     Dates: start: 20120817
  23. RANITIDINE [Concomitant]
     Active Substance: RANITIDINE
     Indication: Product used for unknown indication
     Dosage: BOLUS; ;
     Dates: start: 20120817
  24. SIMVASTATIN [Concomitant]
     Active Substance: SIMVASTATIN
     Indication: Product used for unknown indication

REACTIONS (4)
  - Nausea [Recovering/Resolving]
  - Vomiting [Recovering/Resolving]
  - Diarrhoea [Recovered/Resolved]
  - Diarrhoea [Recovered/Resolved]

NARRATIVE: CASE EVENT DATE: 20120819
